FAERS Safety Report 12889153 (Version 1)
Quarter: 2016Q4

REPORT INFORMATION
  Report Type: Spontaneous
  Country: BR (occurrence: BR)
  Receive Date: 20161027
  Receipt Date: 20161027
  Transmission Date: 20170207
  Serious: Yes (Other)
  Sender: FDA-Public Use
  Company Number: PHHY2014BR135836

PATIENT
  Sex: Female

DRUGS (9)
  1. ESTROGEN [Concomitant]
     Active Substance: ESTRONE\SUS SCROFA OVARY
     Indication: HIGH RISK PREGNANCY
     Route: 048
  2. AMOXICILLIN SODIUM+POTASSIUM CLAVULANATE SANDOZ [Suspect]
     Active Substance: AMOXICILLIN\CLAVULANATE POTASSIUM
     Indication: COUGH
  3. ZOLOFT [Concomitant]
     Active Substance: SERTRALINE HYDROCHLORIDE
     Indication: PRODUCT USED FOR UNKNOWN INDICATION
     Route: 048
  4. AMOXICILLIN SODIUM+POTASSIUM CLAVULANATE SANDOZ [Suspect]
     Active Substance: AMOXICILLIN\CLAVULANATE POTASSIUM
     Indication: INFLUENZA
  5. AMOXICILLIN SODIUM+POTASSIUM CLAVULANATE SANDOZ [Suspect]
     Active Substance: AMOXICILLIN\CLAVULANATE POTASSIUM
     Indication: INFLUENZA
  6. FOLIC ACID. [Concomitant]
     Active Substance: FOLIC ACID
     Indication: HIGH RISK PREGNANCY
     Route: 048
  7. CLEXANE [Concomitant]
     Active Substance: ENOXAPARIN SODIUM
     Indication: PRODUCT USED FOR UNKNOWN INDICATION
     Route: 048
  8. AMOXICILLIN SODIUM+POTASSIUM CLAVULANATE SANDOZ [Suspect]
     Active Substance: AMOXICILLIN\CLAVULANATE POTASSIUM
     Indication: OROPHARYNGEAL PAIN
     Dosage: 625 MG, BID
     Route: 048
     Dates: start: 20141010
  9. PROGESTERONE. [Concomitant]
     Active Substance: PROGESTERONE
     Indication: HIGH RISK PREGNANCY
     Route: 048

REACTIONS (2)
  - Maternal exposure during pregnancy [Unknown]
  - Abortion spontaneous [Unknown]
